FAERS Safety Report 16984007 (Version 4)
Quarter: 2020Q1

REPORT INFORMATION
  Report Type: Spontaneous
  Country: US (occurrence: US)
  Receive Date: 20191101
  Receipt Date: 20200320
  Transmission Date: 20200409
  Serious: Yes (Hospitalization, Other)
  Sender: FDA-Public Use
  Company Number: US-PFIZER INC-2019468494

PATIENT
  Age: 47 Year
  Sex: Female
  Weight: 128.37 kg

DRUGS (2)
  1. PREGABALIN. [Suspect]
     Active Substance: PREGABALIN
     Indication: FIBROMYALGIA
     Dosage: 150 MG, 2X/DAY
     Route: 048
  2. PREGABALIN. [Suspect]
     Active Substance: PREGABALIN
     Dosage: 75 MG, 2X/DAY
     Route: 048
     Dates: start: 201910

REACTIONS (13)
  - Musculoskeletal stiffness [Recovered/Resolved]
  - Musculoskeletal pain [Recovered/Resolved]
  - Neck pain [Recovered/Resolved]
  - Pharyngeal swelling [Unknown]
  - Sciatica [Recovering/Resolving]
  - Urticaria [Unknown]
  - Intentional product use issue [Unknown]
  - Neuropathy peripheral [Unknown]
  - Encephalitis [Unknown]
  - Pain in extremity [Unknown]
  - Pyrexia [Recovered/Resolved]
  - Drug hypersensitivity [Unknown]
  - Drug ineffective [Unknown]

NARRATIVE: CASE EVENT DATE: 201910
